FAERS Safety Report 5459817-7 (Version None)
Quarter: 2007Q3

REPORT INFORMATION
  Report Type: 
  Country: None (occurrence: None)
  Receive Date: 20070813
  Receipt Date: 20070515
  Transmission Date: 20080115
  Serious: Yes (Life-Threatening, Hospitalization)
  Sender: FDA-Public Use
  Company Number: 20073795

PATIENT
  Age: 57 Year
  Sex: Female

DRUGS (2)
  1. LIORESAL [Suspect]
     Indication: MUSCLE SPASTICITY
     Dosage: MCG, DAILY, INTRATHECAL
     Route: 037
  2. ORAL BACLOFEN AND INTRATHECAL MORPHINE [Concomitant]

REACTIONS (4)
  - DRUG INEFFECTIVE [None]
  - HYPERTONIA [None]
  - PAIN [None]
  - SOMNOLENCE [None]
